FAERS Safety Report 6647841-8 (Version None)
Quarter: 2010Q1

REPORT INFORMATION
  Report Type: 
  Country: None (occurrence: None)
  Receive Date: 20100324
  Receipt Date: 20100311
  Transmission Date: 20100710
  Serious: Yes (Disabling)
  Sender: FDA-Public Use
  Company Number: CH-BAYER-201014623GPV

PATIENT
  Sex: Female

DRUGS (1)
  1. BETAFERON [Suspect]
     Indication: MULTIPLE SCLEROSIS
     Dosage: DISCONTINUED FOR TWO MONTH AND RESTARTED WITH 1/4 DOSIS
     Route: 058
     Dates: start: 20091117

REACTIONS (3)
  - ATAXIA [None]
  - MUSCLE SPASMS [None]
  - MUSCULAR WEAKNESS [None]
